FAERS Safety Report 8985526 (Version 1)
Quarter: 2012Q4

REPORT INFORMATION
  Report Type: 
  Country: BR (occurrence: BR)
  Receive Date: 20121226
  Receipt Date: 20121226
  Transmission Date: 20130627
  Serious: Yes (Hospitalization)
  Sender: FDA-Public Use
  Company Number: BR-PFIZER INC-2012320151

PATIENT
  Age: 41 Year
  Sex: Male
  Weight: 95 kg

DRUGS (4)
  1. XALATAN [Suspect]
     Indication: INTRAOCULAR PRESSURE HIGH
     Dosage: 3 ug, 1 drop each eye 1x/day
     Route: 047
     Dates: start: 1999, end: 2007
  2. TIMOLOL MALEATE [Concomitant]
     Indication: INTRAOCULAR PRESSURE HIGH
     Dosage: 1 drop each eye, 1x/day
     Route: 047
     Dates: start: 1999, end: 2007
  3. ATENOLOL [Concomitant]
     Indication: HYPERTENSION
  4. EUTIROX [Concomitant]
     Indication: HYPOTHYROIDISM

REACTIONS (1)
  - Eye disorder [Unknown]
